FAERS Safety Report 12276746 (Version 1)
Quarter: 2016Q2

REPORT INFORMATION
  Report Type: Spontaneous
  Country: US (occurrence: None)
  Receive Date: 20160415
  Receipt Date: 20160415
  Transmission Date: 20160815
  Serious: No
  Sender: FDA-Public Use
  Company Number: None

PATIENT
  Age: 30 Year
  Sex: Female
  Weight: 92.99 kg

DRUGS (4)
  1. TECFIDERA [Suspect]
     Active Substance: DIMETHYL FUMARATE
     Indication: MULTIPLE SCLEROSIS
     Route: 048
     Dates: start: 20160409, end: 20160412
  2. VITAMIN D [Concomitant]
     Active Substance: CHOLECALCIFEROL
  3. DULOXOTINE [Concomitant]
  4. LOREYNA [Concomitant]

REACTIONS (5)
  - Diarrhoea [None]
  - Weight decreased [None]
  - Asthenia [None]
  - Dyspnoea [None]
  - Abdominal pain upper [None]

NARRATIVE: CASE EVENT DATE: 20160409
